FAERS Safety Report 5097408-0 (Version None)
Quarter: 2006Q3

REPORT INFORMATION
  Report Type: 
  Country: None (occurrence: None)
  Receive Date: 20060905
  Receipt Date: 20060814
  Transmission Date: 20061208
  Serious: Yes (Life-Threatening)
  Sender: FDA-Public Use
  Company Number: THYM-11033

PATIENT
  Age: 60 Year
  Sex: Male
  Weight: 122.3 kg

DRUGS (9)
  1. THYMOGLOBULIN [Suspect]
     Indication: PANCREAS TRANSPLANT
  2. PIPERERACILLIN [Concomitant]
  3. FLUCONAZOLE [Concomitant]
  4. METHYLPREDNISOLONE [Concomitant]
  5. ZENAPAX [Concomitant]
  6. MYCOPHENOLATE [Concomitant]
  7. ETOMIDATE [Concomitant]
  8. FENTANYL [Concomitant]
  9. NIMBEX [Concomitant]

REACTIONS (21)
  - BLOOD BICARBONATE DECREASED [None]
  - BLOOD CHLORIDE INCREASED [None]
  - BLOOD CREATININE INCREASED [None]
  - BLOOD GLUCOSE INCREASED [None]
  - BLOOD PH DECREASED [None]
  - BLOOD PRESSURE IMMEASURABLE [None]
  - BLOOD UREA INCREASED [None]
  - HAEMODYNAMIC INSTABILITY [None]
  - HYPOTENSION [None]
  - HYPOVENTILATION [None]
  - LOSS OF CONSCIOUSNESS [None]
  - PCO2 INCREASED [None]
  - PO2 DECREASED [None]
  - PO2 INCREASED [None]
  - POST PROCEDURAL COMPLICATION [None]
  - RESPIRATORY DISTRESS [None]
  - SINUS BRADYCARDIA [None]
  - TACHYCARDIA [None]
  - TACHYPNOEA [None]
  - TROPONIN I INCREASED [None]
  - WHEEZING [None]
